FAERS Safety Report 16699674 (Version 1)
Quarter: 2019Q3

REPORT INFORMATION
  Report Type: Report from Study
  Country: US (occurrence: US)
  Receive Date: 20190813
  Receipt Date: 20190813
  Transmission Date: 20191004
  Serious: Yes (Hospitalization)
  Sender: FDA-Public Use
  Company Number: US-ACTELION-A-NJ2018-173425

PATIENT
  Age: 89 Year
  Sex: Female
  Weight: 49.89 kg

DRUGS (3)
  1. ELIQUIS [Concomitant]
     Active Substance: APIXABAN
  2. TRACLEER [Suspect]
     Active Substance: BOSENTAN
     Indication: PULMONARY ARTERIAL HYPERTENSION
     Dosage: 125 MG, BID
     Route: 048
  3. ORENITRAM [Concomitant]
     Active Substance: TREPROSTINIL

REACTIONS (9)
  - Diarrhoea [Recovering/Resolving]
  - Upper respiratory tract infection [Unknown]
  - Cerebrovascular accident [Unknown]
  - Headache [Unknown]
  - Tooth extraction [Unknown]
  - Weight decreased [Unknown]
  - Toothache [Unknown]
  - Feeding disorder [Unknown]
  - Dyspnoea exertional [Unknown]

NARRATIVE: CASE EVENT DATE: 201907
